FAERS Safety Report 4822173-9 (Version None)
Quarter: 2005Q4

REPORT INFORMATION
  Report Type: 
  Country: None (occurrence: None)
  Receive Date: 20051103
  Receipt Date: 20051021
  Transmission Date: 20060501
  Serious: Yes (Hospitalization)
  Sender: FDA-Public Use
  Company Number: 2005145071

PATIENT
  Age: 22 Month
  Sex: Female
  Weight: 15.8759 kg

DRUGS (1)
  1. BENADRYL [Suspect]
     Indication: ACCIDENTAL OVERDOSE
     Dosage: 3 1/2 OUNCES ONCE, ORAL
     Route: 048
     Dates: start: 20051021, end: 20051021

REACTIONS (3)
  - ACCIDENTAL DRUG INTAKE BY CHILD [None]
  - DIZZINESS [None]
  - FEELING DRUNK [None]
